FAERS Safety Report 9173817 (Version 1)
Quarter: 2013Q1

REPORT INFORMATION
  Report Type: Spontaneous
  Country: US (occurrence: None)
  Receive Date: 20130318
  Receipt Date: 20130318
  Transmission Date: 20140127
  Serious: Yes (Other)
  Sender: FDA-Public Use
  Company Number: ACO_34790_2013

PATIENT
  Age: 68 Year
  Sex: Female

DRUGS (6)
  1. AMPYRA (DALFAMPRIDINE) TABLET, 10MG [Suspect]
     Indication: GAIT DISTURBANCE
  2. FLOMAX (TAMSULOSIN HYDROCHLORIDE) [Concomitant]
  3. OXYBUTYNIN CHLORIDE OXYBUTYNIN HYDROCHLORIDE) [Concomitant]
  4. TRAMADOL TRAMADOL HYDROCHLORIDE) [Concomitant]
  5. AMITRIPTYLINE HCL AMITRIPTYLINE HYDROCHLORIDE [Concomitant]
  6. TIZANIDINE (TIZANIDINE HYDROCHLORIDE) [Concomitant]

REACTIONS (1)
  - Retinal detachment [None]
